FAERS Safety Report 24541795 (Version 5)
Quarter: 2025Q3

REPORT INFORMATION
  Report Type: Report from Study
  Country: US (occurrence: US)
  Receive Date: 20241023
  Receipt Date: 20250911
  Transmission Date: 20251020
  Serious: Yes (Hospitalization)
  Sender: SUNOVION
  Company Number: US-SUMITOMO PHARMA SWITZERLAND GMBH-2024SPA003995

PATIENT
  Age: 83 Year
  Sex: Male

DRUGS (3)
  1. ORGOVYX [Suspect]
     Active Substance: RELUGOLIX
     Indication: Prostate cancer
     Dosage: 120 MG, QD
     Route: 048
     Dates: start: 20241015
  2. OZEMPIC [Suspect]
     Active Substance: SEMAGLUTIDE
  3. PREGABALIN [Concomitant]
     Active Substance: PREGABALIN
     Dosage: 75 MG, QID

REACTIONS (15)
  - Influenza [Unknown]
  - Tooth extraction [Unknown]
  - Dysphonia [Unknown]
  - Dysuria [Unknown]
  - Polyuria [Unknown]
  - Testosterone deficiency syndrome [Unknown]
  - Taste disorder [Unknown]
  - Ear pain [Unknown]
  - Abdominal discomfort [Unknown]
  - Fatigue [Unknown]
  - Arthralgia [Unknown]
  - Asthenia [Unknown]
  - Hot flush [Unknown]
  - Weight increased [Unknown]
  - Incorrect dose administered [Recovered/Resolved]
